FAERS Safety Report 20246927 (Version 1)
Quarter: 2021Q4

REPORT INFORMATION
  Report Type: Spontaneous
  Country: GB (occurrence: GB)
  Receive Date: 20211229
  Receipt Date: 20211229
  Transmission Date: 20220303
  Serious: Yes (Other)
  Sender: FDA-Public Use
  Company Number: None

PATIENT
  Age: 53 Year
  Sex: Male
  Weight: 85 kg

DRUGS (7)
  1. TRULICITY [Suspect]
     Active Substance: DULAGLUTIDE
     Indication: Diabetes mellitus
     Dosage: 3 MG, UNKNOWN
     Route: 058
     Dates: start: 20211106, end: 20211206
  2. ALLOPURINOL [Concomitant]
     Active Substance: ALLOPURINOL
     Indication: Ill-defined disorder
     Dosage: UNK, UNKNOWN
     Route: 065
  3. ASPIRIN [Concomitant]
     Active Substance: ASPIRIN
     Indication: Ill-defined disorder
     Dosage: UNK UNK, UNKNOWN
     Route: 065
  4. ATORVASTATIN CALCIUM [Concomitant]
     Active Substance: ATORVASTATIN CALCIUM
     Indication: Ill-defined disorder
     Dosage: UNK, UNKNOWN
     Route: 065
  5. DAPAGLIFLOZIN [Concomitant]
     Active Substance: DAPAGLIFLOZIN
     Indication: Ill-defined disorder
     Dosage: UNK, UNKNOWN
     Route: 065
  6. GLICLAZIDE [Concomitant]
     Active Substance: GLICLAZIDE
     Indication: Ill-defined disorder
     Dosage: UNK, UNKNOWN
     Route: 065
  7. METFORMIN HYDROCHLORIDE [Concomitant]
     Active Substance: METFORMIN HYDROCHLORIDE
     Indication: Ill-defined disorder
     Dosage: UNK, UNKNOWN
     Route: 065

REACTIONS (1)
  - Microalbuminuria [Recovered/Resolved]

NARRATIVE: CASE EVENT DATE: 20211111
